FAERS Safety Report 5027625-7 (Version None)
Quarter: 2006Q2

REPORT INFORMATION
  Report Type: 
  Country: None (occurrence: None)
  Receive Date: 20060428
  Receipt Date: 20060109
  Transmission Date: 20061013
  Serious: No
  Sender: FDA-Public Use
  Company Number: COT_0376_2006

PATIENT
  Age: 79 Year
  Sex: Female
  Weight: 89.8 kg

DRUGS (15)
  1. VENTAVIS [Suspect]
     Indication: PULMONARY HYPERTENSION
     Dosage: 5 MCG 6TO9X/DAY IH
     Dates: start: 20051216
  2. VENTAVIS [Suspect]
     Indication: PULMONARY HYPERTENSION
     Dosage: 5 MCG 6TO9X/DAY IH
     Dates: start: 20051216
  3. TRACLEER [Concomitant]
  4. LASIX [Concomitant]
  5. NOVOLOG [Concomitant]
  6. LEVOTHYROXINE SODIUM [Concomitant]
  7. AGGRENOX [Concomitant]
  8. LANTUS [Concomitant]
  9. K-DUR 10 [Concomitant]
  10. NORVASC [Concomitant]
  11. MECLIZINE [Concomitant]
  12. DIGOXIN [Concomitant]
  13. ZOCOR [Concomitant]
  14. MOBIC [Concomitant]
  15. GLUCOPHAGE [Concomitant]

REACTIONS (3)
  - ARRHYTHMIA SUPRAVENTRICULAR [None]
  - HYPERGLYCAEMIA [None]
  - SYNCOPE [None]
